FAERS Safety Report 21392161 (Version 2)
Quarter: 2022Q4

REPORT INFORMATION
  Report Type: Report from Study
  Country: US (occurrence: US)
  Receive Date: 20220929
  Receipt Date: 20221027
  Transmission Date: 20230112
  Serious: Yes (Other)
  Sender: FDA-Public Use
  Company Number: US-HORIZON THERAPEUTICS-HZN-2022-002831

PATIENT

DRUGS (12)
  1. TEPEZZA [Suspect]
     Active Substance: TEPROTUMUMAB-TRBW
     Indication: Endocrine ophthalmopathy
     Dosage: FIRST INFUSION (EVERY 3 WEEKS)
     Route: 042
     Dates: start: 20220411
  2. TEPEZZA [Suspect]
     Active Substance: TEPROTUMUMAB-TRBW
     Dosage: SECOND INFUSION, EVERY 3 WEEKS
     Route: 042
     Dates: start: 20220502
  3. TEPEZZA [Suspect]
     Active Substance: TEPROTUMUMAB-TRBW
     Dosage: UNKNOWN INFUSION, EVERY 3 WEEKS
     Route: 042
     Dates: start: 2022
  4. LISINOPRIL [Concomitant]
     Active Substance: LISINOPRIL
     Indication: Product used for unknown indication
  5. AMLODIPINE [Concomitant]
     Active Substance: AMLODIPINE BESYLATE
  6. HYDROCHLOROTHIAZIDE [Concomitant]
     Active Substance: HYDROCHLOROTHIAZIDE
  7. ATORVASTATIN [Concomitant]
     Active Substance: ATORVASTATIN
  8. GABAPENTIN [Concomitant]
     Active Substance: GABAPENTIN
     Indication: Product used for unknown indication
  9. CLONIDINE [Concomitant]
     Active Substance: CLONIDINE
  10. METHIMAZOLE [Concomitant]
     Active Substance: METHIMAZOLE
  11. NOVOLOG [Concomitant]
     Active Substance: INSULIN ASPART
  12. BASAGLAR [Concomitant]
     Active Substance: INSULIN GLARGINE
     Indication: Product used for unknown indication

REACTIONS (15)
  - Blood glucose increased [Recovered/Resolved]
  - Conductive deafness [Unknown]
  - Blood pressure increased [Recovered/Resolved]
  - Ear discomfort [Not Recovered/Not Resolved]
  - Cough [Unknown]
  - Ocular hyperaemia [Unknown]
  - Photophobia [Unknown]
  - Oral pain [Not Recovered/Not Resolved]
  - Ear pain [Not Recovered/Not Resolved]
  - Toothache [Not Recovered/Not Resolved]
  - Feeling hot [Unknown]
  - Erythema [Unknown]
  - Headache [Unknown]
  - Dry eye [Not Recovered/Not Resolved]
  - Eye pruritus [Unknown]

NARRATIVE: CASE EVENT DATE: 20220101
